FAERS Safety Report 9506533 (Version 3)
Quarter: 2013Q4

REPORT INFORMATION
  Report Type: Report from Study
  Country: AR (occurrence: AR)
  Receive Date: 20130906
  Receipt Date: 20131205
  Transmission Date: 20140711
  Serious: Yes (Other)
  Sender: FDA-Public Use
  Company Number: PHHY2013AR070124

PATIENT
  Age: 67 Year
  Sex: Female

DRUGS (1)
  1. EXFORGE [Suspect]
     Indication: HYPERTENSION
     Dosage: 1 DF, (160 MG VALS/ 10 MG AMLO) DAILY
     Route: 048
     Dates: start: 20130629

REACTIONS (6)
  - Radius fracture [Recovering/Resolving]
  - Fall [Recovering/Resolving]
  - Accident [Unknown]
  - Gait disturbance [Recovering/Resolving]
  - Hypertension [Recovering/Resolving]
  - Swelling [Recovering/Resolving]
